FAERS Safety Report 8076663-9 (Version None)
Quarter: 2012Q1

REPORT INFORMATION
  Report Type: 
  Country: None (occurrence: None)
  Receive Date: 20120127
  Receipt Date: 20120124
  Transmission Date: 20120608
  Serious: Yes (Other)
  Sender: FDA-Public Use
  Company Number: AU-BAYER-2012-005120

PATIENT
  Sex: Female

DRUGS (2)
  1. THYROID PREPARATIONS [Concomitant]
     Indication: AUTOIMMUNE THYROIDITIS
  2. MAGNEVIST [Suspect]
     Indication: NUCLEAR MAGNETIC RESONANCE IMAGING
     Dosage: UNK
     Dates: start: 20110404, end: 20110404

REACTIONS (19)
  - BALANCE DISORDER [None]
  - INCREASED TENDENCY TO BRUISE [None]
  - JOINT SWELLING [None]
  - MUSCLE SPASMS [None]
  - TINNITUS [None]
  - MUSCLE TWITCHING [None]
  - NEUROLOGICAL SYMPTOM [None]
  - PARAESTHESIA [None]
  - MICTURITION URGENCY [None]
  - POLLAKIURIA [None]
  - HYPOAESTHESIA [None]
  - INFLAMMATION [None]
  - JOINT STIFFNESS [None]
  - URINARY INCONTINENCE [None]
  - PLATELET COUNT DECREASED [None]
  - ARTHRITIS [None]
  - ARTHRALGIA [None]
  - AUTOIMMUNE DISORDER [None]
  - MUSCULOSKELETAL STIFFNESS [None]
